FAERS Safety Report 7421815-1 (Version None)
Quarter: 2011Q2

REPORT INFORMATION
  Report Type: 
  Country: None (occurrence: None)
  Receive Date: 20110418
  Receipt Date: 20110412
  Transmission Date: 20111010
  Serious: Yes (Hospitalization)
  Sender: FDA-Public Use
  Company Number: US-B.I. PHARMACEUTICALS,INC./RIDGEFIELD-2011-BP-10696BP

PATIENT
  Age: 83 Year
  Sex: Female

DRUGS (3)
  1. PRADAXA [Suspect]
     Indication: ATRIAL FIBRILLATION
     Dosage: 300 MG
     Route: 048
     Dates: start: 20101201, end: 20101201
  2. COZAAR [Concomitant]
     Indication: HYPERTENSION
     Route: 048
  3. THYROXINE [Concomitant]
     Indication: THYROID DISORDER
     Route: 048

REACTIONS (1)
  - RECTAL HAEMORRHAGE [None]
